FAERS Safety Report 21525979 (Version 2)
Quarter: 2023Q1

REPORT INFORMATION
  Report Type: Report from Study
  Country: US (occurrence: US)
  Receive Date: 20221031
  Receipt Date: 20230109
  Transmission Date: 20230417
  Serious: Yes (Other)
  Sender: FDA-Public Use
  Company Number: US-NOVARTISPH-NVSC2022US239892

PATIENT
  Sex: Female

DRUGS (1)
  1. KESIMPTA [Suspect]
     Active Substance: OFATUMUMAB
     Indication: Relapsing multiple sclerosis
     Dosage: UNK, QMO
     Route: 058
     Dates: start: 20210624

REACTIONS (11)
  - Multiple sclerosis pseudo relapse [Unknown]
  - Multiple sclerosis relapse [Unknown]
  - Fatigue [Unknown]
  - Feeling hot [Unknown]
  - Balance disorder [Unknown]
  - Fall [Unknown]
  - Paraesthesia [Unknown]
  - Feeling abnormal [Unknown]
  - Sleep disorder [Unknown]
  - Hypersensitivity [Unknown]
  - Dyspnoea [Recovered/Resolved]

NARRATIVE: CASE EVENT DATE: 20210101
